FAERS Safety Report 9279623 (Version 1)
Quarter: 2013Q2

REPORT INFORMATION
  Report Type: Spontaneous
  Country: US (occurrence: US)
  Receive Date: 20130509
  Receipt Date: 20130509
  Transmission Date: 20140414
  Serious: No
  Sender: FDA-Public Use
  Company Number: US-B.I. PHARMACEUTICALS,INC./RIDGEFIELD-2013-BI-12767BP

PATIENT
  Age: 72 Year
  Sex: Female

DRUGS (7)
  1. COMBIVENT [Suspect]
     Dosage: STRENGTH: 18 MCG / 103 MCG
     Route: 055
     Dates: start: 2010, end: 20130422
  2. COMBIVENT [Suspect]
     Dosage: STRENGTH: 20 MCG / 100 MCG
     Route: 055
     Dates: start: 20130422
  3. OMEPRAZOLE [Concomitant]
     Indication: GASTROOESOPHAGEAL REFLUX DISEASE
     Dosage: 40 MG
     Route: 048
  4. FISH OIL [Concomitant]
     Indication: CATARACT
     Route: 048
  5. SIMVASTATIN [Concomitant]
     Indication: BLOOD CHOLESTEROL INCREASED
     Dosage: 40 MG
     Route: 048
  6. ZESTRIL [Concomitant]
     Indication: HYPERTENSION
     Dosage: 25 MG
     Route: 048
  7. TRAMADOL [Concomitant]
     Indication: ARTHRITIS
     Dosage: 100 MG
     Route: 048

REACTIONS (5)
  - Nervousness [Recovered/Resolved]
  - Dizziness [Recovered/Resolved]
  - Lung infection [Recovered/Resolved]
  - Bronchitis [Recovered/Resolved]
  - Sinusitis [Recovered/Resolved]
